FAERS Safety Report 8390403-5 (Version None)
Quarter: 2012Q2

REPORT INFORMATION
  Report Type: 
  Country: None (occurrence: None)
  Receive Date: 20120529
  Receipt Date: 20120523
  Transmission Date: 20120825
  Serious: Yes (Other)
  Sender: FDA-Public Use
  Company Number: US-JNJFOC-20120518994

PATIENT
  Age: 56 Year
  Sex: Female
  Weight: 56.7 kg

DRUGS (3)
  1. ZYRTEC-D 12 HOUR [Suspect]
     Indication: NASAL CONGESTION
     Route: 048
     Dates: start: 20120509
  2. CRESTOR [Concomitant]
     Indication: BLOOD CHOLESTEROL INCREASED
     Route: 065
  3. ZYRTEC-D 12 HOUR [Suspect]
     Route: 048

REACTIONS (2)
  - TINNITUS [None]
  - HYPERHIDROSIS [None]
